FAERS Safety Report 6856930-4 (Version None)
Quarter: 2010Q3

REPORT INFORMATION
  Report Type: 
  Country: None (occurrence: None)
  Receive Date: 20100719
  Receipt Date: 20091105
  Transmission Date: 20110219
  Serious: No
  Sender: FDA-Public Use
  Company Number: US-KINGPHARMUSA00001-K200901387

PATIENT
  Sex: Female
  Weight: 64.853 kg

DRUGS (2)
  1. LEVOXYL [Suspect]
     Dosage: UNK MCG, UNK
     Dates: start: 20070101
  2. LEVOXYL [Suspect]
     Dosage: 88 MCG, QD
     Dates: start: 20090101

REACTIONS (7)
  - ABDOMINAL DISTENSION [None]
  - FEELING HOT [None]
  - HEPATOMEGALY [None]
  - MIDDLE INSOMNIA [None]
  - PALPITATIONS [None]
  - PRURITUS [None]
  - URTICARIA [None]
